FAERS Safety Report 7442676-0 (Version None)
Quarter: 2011Q2

REPORT INFORMATION
  Report Type: 
  Country: None (occurrence: None)
  Receive Date: 20110428
  Receipt Date: 20110425
  Transmission Date: 20111010
  Serious: No
  Sender: FDA-Public Use
  Company Number: US-PFIZER INC-2011088927

PATIENT
  Sex: Male

DRUGS (1)
  1. VIAGRA [Suspect]
     Dosage: UNK

REACTIONS (4)
  - THROAT IRRITATION [None]
  - FLUSHING [None]
  - PARAESTHESIA ORAL [None]
  - DRUG INEFFECTIVE [None]
